FAERS Safety Report 7091658-X (Version None)
Quarter: 2010Q4

REPORT INFORMATION
  Report Type: 
  Country: None (occurrence: None)
  Receive Date: 20101109
  Receipt Date: 20081027
  Transmission Date: 20110411
  Serious: No
  Sender: FDA-Public Use
  Company Number: US-KINGPHARMUSA00001-K200801257

PATIENT
  Age: 55 Year
  Sex: Male

DRUGS (1)
  1. EPIPEN [Suspect]
     Dosage: UNK
     Dates: start: 20081027, end: 20081027

REACTIONS (1)
  - ACCIDENTAL EXPOSURE [None]
